FAERS Safety Report 18765331 (Version 3)
Quarter: 2022Q3

REPORT INFORMATION
  Report Type: Spontaneous
  Country: US (occurrence: US)
  Receive Date: 20210121
  Receipt Date: 20220822
  Transmission Date: 20221026
  Serious: Yes (Other)
  Sender: FDA-Public Use
  Company Number: US-AMGEN-USASP2021006758

PATIENT
  Age: 69 Year
  Sex: Female

DRUGS (1)
  1. EVENITY [Suspect]
     Active Substance: ROMOSOZUMAB-AQQG
     Indication: Product used for unknown indication
     Dosage: UNK
     Route: 065
     Dates: start: 20201229

REACTIONS (2)
  - Spinal operation [Unknown]
  - Bone density abnormal [Unknown]

NARRATIVE: CASE EVENT DATE: 20210125
